FAERS Safety Report 16558400 (Version 1)
Quarter: 2019Q3

REPORT INFORMATION
  Report Type: Spontaneous
  Country: CA (occurrence: CA)
  Receive Date: 20190711
  Receipt Date: 20190711
  Transmission Date: 20191004
  Serious: Yes (Other)
  Sender: FDA-Public Use
  Company Number: CA-AUROBINDO-AUR-APL-2019-038661

PATIENT

DRUGS (6)
  1. METHOTREXATE SODIUM. [Suspect]
     Active Substance: METHOTREXATE SODIUM
     Indication: PRODUCT USED FOR UNKNOWN INDICATION
     Dosage: 25 MILLIGRAM, EVERY WEEK
     Route: 048
  2. METHOTREXATE SODIUM. [Suspect]
     Active Substance: METHOTREXATE SODIUM
     Indication: PRODUCT USED FOR UNKNOWN INDICATION
     Dosage: 12.5 MILLIGRAM, EVERY WEEK
     Route: 048
  3. VENLAFAXINE [Suspect]
     Active Substance: VENLAFAXINE HYDROCHLORIDE
     Indication: DEPRESSION
     Dosage: ONE EVERY ONE DAY
     Route: 065
  4. SULFASALAZINE. [Suspect]
     Active Substance: SULFASALAZINE
     Indication: PRODUCT USED FOR UNKNOWN INDICATION
     Dosage: 1000 MILLIGRAM, ONCE A DAY
     Route: 065
  5. COVERSYL [Concomitant]
     Active Substance: PERINDOPRIL
     Indication: HYPERTENSION
     Dosage: UNK
     Route: 065
  6. INFLIXIMAB [Suspect]
     Active Substance: INFLIXIMAB
     Indication: PSORIATIC ARTHROPATHY
     Dosage: 500 MILLIGRAM, CYCLICAL
     Route: 042

REACTIONS (10)
  - Sebaceous gland infection [Recovered/Resolved]
  - Palpitations [Recovered/Resolved]
  - Bacterial infection [Recovered/Resolved]
  - Condition aggravated [Recovered/Resolved]
  - Feeling abnormal [Recovered/Resolved]
  - Dizziness [Recovered/Resolved]
  - Purulent discharge [Recovered/Resolved]
  - Psoriatic arthropathy [Recovered/Resolved]
  - Blood pressure increased [Recovered/Resolved]
  - Tendon rupture [Recovered/Resolved]
